FAERS Safety Report 22020372 (Version 1)
Quarter: 2023Q1

REPORT INFORMATION
  Report Type: Spontaneous
  Country: US (occurrence: US)
  Receive Date: 20230222
  Receipt Date: 20230222
  Transmission Date: 20230418
  Serious: No
  Sender: FDA-Public Use
  Company Number: US-SA-SAC20230217000868

PATIENT
  Age: 38 Year
  Sex: Male

DRUGS (2)
  1. ALPROLIX [Suspect]
     Active Substance: EFTRENONACOG ALFA
     Indication: Factor IX deficiency
     Dosage: 4500IU, FREQUENCY: EVERY 7-10 DAYS
     Route: 042
     Dates: start: 202301
  2. ALPROLIX [Suspect]
     Active Substance: EFTRENONACOG ALFA
     Indication: Factor IX deficiency
     Dosage: 4500IU, FREQUENCY: EVERY 7-10 DAYS
     Route: 042
     Dates: start: 202301

REACTIONS (1)
  - Joint swelling [Unknown]
